FAERS Safety Report 7150762-8 (Version None)
Quarter: 2010Q4

REPORT INFORMATION
  Report Type: 
  Country: None (occurrence: None)
  Receive Date: 20101210
  Receipt Date: 20060821
  Transmission Date: 20110411
  Serious: Yes (Hospitalization, Other)
  Sender: FDA-Public Use
  Company Number: NL-ROCHE-448385

PATIENT
  Age: 64 Year
  Sex: Male

DRUGS (4)
  1. BEVACIZUMAB [Suspect]
     Route: 042
     Dates: start: 20060101, end: 20060101
  2. BEVACIZUMAB [Suspect]
     Route: 042
  3. FLUOROURACIL [Concomitant]
     Route: 042
     Dates: start: 20060101
  4. OXALIPLATIN [Concomitant]
     Route: 065
     Dates: start: 20060101

REACTIONS (5)
  - COLORECTAL CANCER METASTATIC [None]
  - DISEASE PROGRESSION [None]
  - HAEMORRHAGE SUBCUTANEOUS [None]
  - MALIGNANT NEOPLASM PROGRESSION [None]
  - PYREXIA [None]
